FAERS Safety Report 21062101 (Version 2)
Quarter: 2022Q3

REPORT INFORMATION
  Report Type: Spontaneous
  Country: FR (occurrence: FR)
  Receive Date: 20220710
  Receipt Date: 20220808
  Transmission Date: 20221027
  Serious: Yes (Other)
  Sender: FDA-Public Use
  Company Number: FR-SA-SAC20220622000539

PATIENT
  Age: 41 Year
  Sex: Female
  Weight: 60 kg

DRUGS (7)
  1. XOLAIR [Suspect]
     Active Substance: OMALIZUMAB
     Indication: Asthma
     Dosage: UNK
     Route: 065
  2. METHOTREXATE [Suspect]
     Active Substance: METHOTREXATE
     Indication: Asthma
     Dosage: 10 MG
     Route: 030
  3. ATARAX [Suspect]
     Active Substance: HYDROXYZINE HYDROCHLORIDE
     Indication: Product used for unknown indication
     Dosage: 25 MG
     Route: 048
     Dates: end: 20220128
  4. DUPILUMAB [Suspect]
     Active Substance: DUPILUMAB
     Indication: Product used for unknown indication
     Dosage: 300 MG, BIW
     Route: 058
     Dates: start: 20220128, end: 20220225
  5. EBASTINE [Concomitant]
     Active Substance: EBASTINE
     Indication: Product used for unknown indication
     Dosage: 5 MG
  6. ACETAMINOPHEN [Concomitant]
     Active Substance: ACETAMINOPHEN
     Indication: Product used for unknown indication
     Dosage: UNK
  7. ATARAX [Concomitant]
     Active Substance: HYDROXYZINE HYDROCHLORIDE
     Indication: Product used for unknown indication
     Dates: start: 20220128

REACTIONS (6)
  - Oedema [Recovered/Resolved with Sequelae]
  - Anaphylactic reaction [Recovered/Resolved with Sequelae]
  - Pruritus [Recovered/Resolved with Sequelae]
  - Inflammation [Recovered/Resolved]
  - Skin plaque [Recovered/Resolved]
  - Erythema [Recovered/Resolved]

NARRATIVE: CASE EVENT DATE: 20220128
